FAERS Safety Report 16144950 (Version 1)
Quarter: 2019Q2

REPORT INFORMATION
  Report Type: Spontaneous
  Country: US (occurrence: US)
  Receive Date: 20190402
  Receipt Date: 20190402
  Transmission Date: 20190711
  Serious: Yes (Other)
  Sender: FDA-Public Use
  Company Number: US-IMPAX LABORATORIES, LLC-2019-IPXL-00624

PATIENT
  Age: 79 Year
  Sex: Female

DRUGS (4)
  1. BUSPIRONE [Concomitant]
     Active Substance: BUSPIRONE HYDROCHLORIDE
     Indication: PAIN
     Dosage: 10 MILLIGRAM, 2 /DAY
     Route: 065
  2. BUDESONIDE. [Suspect]
     Active Substance: BUDESONIDE
     Indication: CHRONIC OBSTRUCTIVE PULMONARY DISEASE
     Dosage: 0.5 MILLIGRAM, BID
  3. IPRATROPIUM BROMIDE. [Concomitant]
     Active Substance: IPRATROPIUM BROMIDE
     Indication: CHRONIC OBSTRUCTIVE PULMONARY DISEASE
     Dosage: 1 DOSAGE FORM, BID
  4. LISINOPRIL. [Concomitant]
     Active Substance: LISINOPRIL
     Indication: BLOOD PRESSURE ABNORMAL
     Dosage: 40 MILLIGRAM, 1 /DAY

REACTIONS (4)
  - Burning sensation [Recovered/Resolved]
  - Therapeutic product effect incomplete [Unknown]
  - Lung infection [Recovered/Resolved]
  - Product packaging quantity issue [Unknown]

NARRATIVE: CASE EVENT DATE: 2019
